FAERS Safety Report 7201797 (Version 3)
Quarter: 2014Q2

REPORT INFORMATION
  Report Type: Spontaneous
  Country: US (occurrence: None)
  Receive Date: 20091120
  Receipt Date: 20140530
  Transmission Date: 20141212
  Serious: Yes (Hospitalization, Other)
  Sender: FDA-Public Use
  Company Number: 2009S1008422

PATIENT
  Age: 55 Year
  Sex: Male

DRUGS (7)
  1. FLEET PHOSPHO-SODA ORAL SALINE LAXATIVE, GINGER-LEMON FLAVOR [Suspect]
     Indication: COLONOSCOPY
     Dosage: TOTAL, ORAL
     Route: 048
     Dates: start: 20060108, end: 20060108
  2. FLEET STIMULANT LAXATIVE TABLET,BISACODYL [Suspect]
     Indication: COLONOSCOPY
     Dosage: TOTAL, ORAL
     Route: 048
     Dates: start: 20060108, end: 20060108
  3. LIPITOR (ATORVASTATIN CALCIUM)? [Concomitant]
  4. NASONEX (MOMETASONE FUROATE) [Concomitant]
  5. CLARITIN (GLICLAZIDE) [Concomitant]
  6. IBUPROFEN (IBUPROFEN) [Concomitant]
  7. DIOVAN (VALSARTAN) [Concomitant]

REACTIONS (19)
  - Nausea [None]
  - Vomiting [None]
  - Diarrhoea [None]
  - Dizziness [None]
  - Fatigue [None]
  - Renal failure chronic [None]
  - Renal transplant [None]
  - Dialysis [None]
  - Nephrogenic anaemia [None]
  - Hyperparathyroidism [None]
  - Inappropriate schedule of drug administration [None]
  - Acidosis [None]
  - Chills [None]
  - Weight decreased [None]
  - Supraventricular tachycardia [None]
  - Paraesthesia [None]
  - Tremor [None]
  - Hypoaesthesia [None]
  - Neuropathy peripheral [None]
